FAERS Safety Report 5135259-9 (Version None)
Quarter: 2006Q4

REPORT INFORMATION
  Report Type: 
  Country: None (occurrence: None)
  Receive Date: 20061024
  Receipt Date: 20061024
  Transmission Date: 20070319
  Serious: Yes (Hospitalization)
  Sender: FDA-Public Use
  Company Number: None

PATIENT
  Sex: Male
  Weight: 14.9 kg

DRUGS (4)
  1. MERCAPTOPURINE [Suspect]
     Dosage: 854.25 MG
  2. METHOTREXATE [Suspect]
     Dosage: 24 MG
     Route: 037
  3. PEG-ASPARAGINASE (K-H) [Suspect]
     Dosage: 1675 IU
  4. TPN [Concomitant]

REACTIONS (1)
  - BLOOD BILIRUBIN INCREASED [None]
